FAERS Safety Report 8218736-3 (Version None)
Quarter: 2012Q1

REPORT INFORMATION
  Report Type: 
  Country: None (occurrence: None)
  Receive Date: 20120319
  Receipt Date: 20120307
  Transmission Date: 20120608
  Serious: Yes (Death, Congenital Anomaly)
  Sender: FDA-Public Use
  Company Number: DE-NOVOPROD-346691

PATIENT

DRUGS (4)
  1. PROTAPHANE [Concomitant]
     Indication: TYPE 1 DIABETES MELLITUS
  2. LEVEMIR [Suspect]
     Indication: TYPE 1 DIABETES MELLITUS
     Dosage: 40 U, QD
     Route: 064
     Dates: end: 20110519
  3. METOPROLOL SUCCINATE [Concomitant]
     Indication: HYPERTENSION
     Dosage: UNK
     Route: 064
     Dates: end: 20120524
  4. NOVORAPID [Concomitant]
     Indication: TYPE 1 DIABETES MELLITUS
     Dosage: 50 U, QD

REACTIONS (2)
  - CONGENITAL ANOMALY [None]
  - FOETAL EXPOSURE DURING PREGNANCY [None]
